FAERS Safety Report 7385333-1 (Version None)
Quarter: 2011Q1

REPORT INFORMATION
  Report Type: 
  Country: None (occurrence: None)
  Receive Date: 20110330
  Receipt Date: 20100816
  Transmission Date: 20110831
  Serious: No
  Sender: FDA-Public Use
  Company Number: US-MYLANLABS-2010S1015121

PATIENT
  Age: 20 Year
  Sex: Male
  Weight: 58.97 kg

DRUGS (3)
  1. EMSAM [Suspect]
     Indication: MAJOR DEPRESSION
     Dosage: CHANGED QD
     Route: 062
     Dates: start: 20100601
  2. KLONOPIN [Concomitant]
     Indication: ANXIETY
  3. PROPRANOLOL [Concomitant]
     Indication: ANXIETY

REACTIONS (1)
  - AGITATION [None]
